FAERS Safety Report 8988673 (Version 1)
Quarter: 2012Q4

REPORT INFORMATION
  Report Type: Spontaneous
  Country: US (occurrence: None)
  Receive Date: 20121218
  Receipt Date: 20121218
  Transmission Date: 20130627
  Serious: Yes (Life-Threatening, Hospitalization)
  Sender: FDA-Public Use
  Company Number: 2012P1066660

PATIENT
  Age: 59 Year
  Sex: Male

DRUGS (3)
  1. INFUMORPH [Suspect]
  2. CLONIDINE [Suspect]
  3. BUPIVACAINE (NO PREF. NAME) [Suspect]

REACTIONS (3)
  - Respiratory arrest [None]
  - Unresponsive to stimuli [None]
  - Nervous system disorder [None]
